FAERS Safety Report 16916581 (Version 2)
Quarter: 2019Q4

REPORT INFORMATION
  Report Type: Report from Study
  Country: CA (occurrence: CA)
  Receive Date: 20191014
  Receipt Date: 20191021
  Transmission Date: 20200122
  Serious: Yes (Hospitalization, Other)
  Sender: FDA-Public Use
  Company Number: CA-AMGEN-CANSL2019167675

PATIENT
  Age: 65 Year
  Sex: Female

DRUGS (1)
  1. ENBREL [Suspect]
     Active Substance: ETANERCEPT
     Indication: RHEUMATOID ARTHRITIS
     Dosage: 25 MILLIGRAM, 2 TIMES/WK
     Route: 065
     Dates: start: 20030516, end: 2017

REACTIONS (3)
  - Rheumatoid arthritis [Not Recovered/Not Resolved]
  - B-cell lymphoma stage III [Unknown]
  - Malignant melanoma stage I [Unknown]

NARRATIVE: CASE EVENT DATE: 2014
